FAERS Safety Report 8229536-2 (Version None)
Quarter: 2012Q1

REPORT INFORMATION
  Report Type: 
  Country: None (occurrence: None)
  Receive Date: 20120322
  Receipt Date: 20120316
  Transmission Date: 20120608
  Serious: Yes (Other)
  Sender: FDA-Public Use
  Company Number: CHPA2012BR005015

PATIENT
  Age: 50 Year
  Sex: Female

DRUGS (3)
  1. ACETAMINOPHEN, ASPIRIN AND CAFFEINE [Suspect]
     Indication: HEADACHE
     Dosage: 1 DF, PRN
     Route: 048
  2. MELHORAL [Suspect]
     Indication: HEADACHE
     Dosage: UNK, UNK
  3. DORIL [Suspect]
     Indication: HEADACHE
     Dosage: UNK, UNK

REACTIONS (3)
  - GLAUCOMA [None]
  - VISUAL ACUITY REDUCED TRANSIENTLY [None]
  - CONCOMITANT DISEASE AGGRAVATED [None]
